FAERS Safety Report 8082384-9 (Version None)
Quarter: 2012Q1

REPORT INFORMATION
  Report Type: 
  Country: None (occurrence: None)
  Receive Date: 20120127
  Receipt Date: 20110217
  Transmission Date: 20120608
  Serious: No
  Sender: FDA-Public Use
  Company Number: US-ABBOTT-11P-163-0706085-00

PATIENT
  Age: 46 Year
  Sex: Female

DRUGS (5)
  1. CYMBALTA [Concomitant]
     Indication: ANXIETY
  2. HUMIRA [Suspect]
     Indication: PSORIASIS
     Dates: start: 20110131
  3. ASPIRIN [Concomitant]
     Indication: CARDIOVASCULAR EVENT PROPHYLAXIS
  4. LOVASTATIN [Concomitant]
     Indication: BLOOD CHOLESTEROL INCREASED
  5. ESTRADIOL [Concomitant]
     Indication: HORMONE REPLACEMENT THERAPY

REACTIONS (1)
  - ALOPECIA [None]
